FAERS Safety Report 12971711 (Version 3)
Quarter: 2017Q1

REPORT INFORMATION
  Report Type: Report from Study
  Country: US (occurrence: US)
  Receive Date: 20161123
  Receipt Date: 20170324
  Transmission Date: 20170428
  Serious: Yes (Hospitalization, Other)
  Sender: FDA-Public Use
  Company Number: PHEH2016US030179

PATIENT
  Age: 54 Year
  Sex: Male

DRUGS (3)
  1. TAFINLAR [Suspect]
     Active Substance: DABRAFENIB MESYLATE
     Indication: MALIGNANT MELANOMA STAGE IV
     Dosage: 75 MG, BID
     Route: 048
     Dates: start: 20160317, end: 20170303
  2. TAFINLAR [Suspect]
     Active Substance: DABRAFENIB MESYLATE
     Indication: MALIGNANT MELANOMA
  3. MEKINIST [Suspect]
     Active Substance: TRAMETINIB DIMETHYL SULFOXIDE
     Indication: MALIGNANT MELANOMA STAGE IV
     Dosage: 2 MG, QD
     Route: 048
     Dates: start: 20160317, end: 20170102

REACTIONS (22)
  - Malignant neoplasm progression [Unknown]
  - Glomerular filtration rate decreased [Unknown]
  - White blood cell count decreased [Recovered/Resolved]
  - C-reactive protein increased [Unknown]
  - Platelet count decreased [Recovered/Resolved]
  - Blood urea increased [Unknown]
  - Blood creatinine increased [Unknown]
  - Blood albumin decreased [Unknown]
  - Pyrexia [Recovered/Resolved]
  - Blood sodium decreased [Unknown]
  - Neutrophil count increased [Recovered/Resolved]
  - Blood calcium decreased [Recovered/Resolved]
  - High density lipoprotein decreased [Unknown]
  - Blood glucose increased [Unknown]
  - Blood triglycerides increased [Unknown]
  - Aspartate aminotransferase increased [Unknown]
  - Glycosylated haemoglobin increased [Unknown]
  - Blood phosphorus increased [Unknown]
  - Drug level increased [Unknown]
  - Blood chloride decreased [Unknown]
  - Blood osmolarity decreased [Unknown]
  - Red blood cell count increased [Unknown]

NARRATIVE: CASE EVENT DATE: 20161017
